FAERS Safety Report 20317956 (Version 2)
Quarter: 2022Q1

REPORT INFORMATION
  Report Type: Spontaneous
  Country: JP (occurrence: JP)
  Receive Date: 20220110
  Receipt Date: 20220302
  Transmission Date: 20220423
  Serious: Yes (Hospitalization, Disabling, Other)
  Sender: FDA-Public Use
  Company Number: JP-Eisai Medical Research-EC-2017-027009

PATIENT

DRUGS (10)
  1. ZONISAMIDE [Suspect]
     Active Substance: ZONISAMIDE
     Indication: Epilepsy
     Dosage: 200 MG, BID
     Route: 048
     Dates: end: 20170411
  2. ZONISAMIDE [Suspect]
     Active Substance: ZONISAMIDE
     Dosage: 300 MG (200 MG (MORNING) AND 100 MG (EVENING))/DAY)
     Dates: start: 20170411, end: 20170418
  3. ZONISAMIDE [Suspect]
     Active Substance: ZONISAMIDE
     Dosage: 100 MG, BID (DECREASED)
     Route: 048
     Dates: start: 20170418, end: 20170425
  4. ZONISAMIDE [Suspect]
     Active Substance: ZONISAMIDE
     Dosage: 100 MG, QD (DECREASED)
     Route: 048
     Dates: start: 20170425, end: 20170502
  5. DEPAKENE [Concomitant]
     Active Substance: VALPROIC ACID
     Indication: Parietal lobe epilepsy
     Dosage: 1200 MG
     Route: 048
     Dates: start: 20121026, end: 20170228
  6. DEPAKENE [Concomitant]
     Active Substance: VALPROIC ACID
     Indication: Temporal lobe epilepsy
     Dosage: 800 MG (STARTED TO BE DECREASED)
     Route: 048
     Dates: start: 20170301, end: 20170405
  7. TEGRETOL [Concomitant]
     Active Substance: CARBAMAZEPINE
     Indication: Parietal lobe epilepsy
     Dosage: UNK
     Route: 048
     Dates: start: 20101222
  8. TEGRETOL [Concomitant]
     Active Substance: CARBAMAZEPINE
     Indication: Temporal lobe epilepsy
  9. VIMPAT [Concomitant]
     Active Substance: LACOSAMIDE
     Indication: Temporal lobe epilepsy
     Dosage: UNK
     Dates: start: 20161214
  10. MYCOPHENOLATE MOFETIL [Concomitant]
     Active Substance: MYCOPHENOLATE MOFETIL
     Dosage: 1500 MG, QD
     Route: 048

REACTIONS (1)
  - Tubulointerstitial nephritis [Not Recovered/Not Resolved]

NARRATIVE: CASE EVENT DATE: 20161215
